FAERS Safety Report 4288289-3 (Version None)
Quarter: 2004Q1

REPORT INFORMATION
  Report Type: 
  Country: None (occurrence: None)
  Receive Date: 20040205
  Receipt Date: 20040127
  Transmission Date: 20041129
  Serious: Yes (Life-Threatening)
  Sender: FDA-Public Use
  Company Number: EMADSS2003001154

PATIENT
  Age: 81 Year
  Sex: Male

DRUGS (9)
  1. REMICADE [Suspect]
     Indication: RHEUMATOID ARTHRITIS
     Dosage: , 1 IN 1 AS NECESSARY, INTRAVENOUS;  , 1 IN 1 AS NECESSARY, INTRAVENOUS;  , 1 IN 1 AS NECESSARY, IN
     Route: 042
     Dates: start: 20021024, end: 20021024
  2. REMICADE [Suspect]
     Indication: RHEUMATOID ARTHRITIS
     Dosage: , 1 IN 1 AS NECESSARY, INTRAVENOUS;  , 1 IN 1 AS NECESSARY, INTRAVENOUS;  , 1 IN 1 AS NECESSARY, IN
     Route: 042
     Dates: start: 20021025, end: 20021025
  3. REMICADE [Suspect]
     Indication: RHEUMATOID ARTHRITIS
     Dosage: , 1 IN 1 AS NECESSARY, INTRAVENOUS;  , 1 IN 1 AS NECESSARY, INTRAVENOUS;  , 1 IN 1 AS NECESSARY, IN
     Route: 042
     Dates: start: 20030102, end: 20030102
  4. NOVATREX (METHOTREXATE) UNSPECIFIED [Concomitant]
  5. TRAMADOL HCL [Concomitant]
  6. CORTANCYL (PREDNISONE) UNSPECIFIED [Concomitant]
  7. ANTIHISTAMINES (ANTIHISTAMINES) UNSPECIFIED [Concomitant]
  8. LEVOTHYROX (LEVOTHYROXINE SODIUM) UNSPECIFIED [Concomitant]
  9. LANZOR (LANSOPRAZOLE) UNSPECIFIED [Concomitant]

REACTIONS (7)
  - ABDOMINAL PAIN [None]
  - CHILLS [None]
  - HOT FLUSH [None]
  - OXYGEN SATURATION DECREASED [None]
  - RASH [None]
  - SHOCK [None]
  - SIGMOIDITIS [None]
